FAERS Safety Report 8783123 (Version 2)
Quarter: 2012Q4

REPORT INFORMATION
  Report Type: Report from Study
  Country: US (occurrence: US)
  Receive Date: 20120913
  Receipt Date: 20120918
  Transmission Date: 20130627
  Serious: Yes (Hospitalization)
  Sender: FDA-Public Use
  Company Number: US-JNJFOC-20120904369

PATIENT
  Age: 16 Year
  Sex: Male
  Weight: 60.6 kg

DRUGS (8)
  1. REMICADE [Suspect]
     Indication: CROHN^S DISEASE
     Dosage: discontiued prior to study enrollment
     Route: 042
     Dates: start: 20080901
  2. HUMIRA [Concomitant]
     Indication: CROHN^S DISEASE
     Dates: start: 20120801
  3. HUMIRA [Concomitant]
     Indication: CROHN^S DISEASE
     Dates: start: 20100831
  4. HUMIRA [Concomitant]
     Indication: CROHN^S DISEASE
     Dates: start: 20120725
  5. MULTIVITAMINS [Concomitant]
  6. FERROUS SULFATE [Concomitant]
  7. OSCAL NOS [Concomitant]
  8. VITAMIN D [Concomitant]

REACTIONS (1)
  - Crohn^s disease [Recovered/Resolved]
